FAERS Safety Report 9696944 (Version 4)
Quarter: 2018Q2

REPORT INFORMATION
  Report Type: Spontaneous
  Country: US (occurrence: US)
  Receive Date: 20131119
  Receipt Date: 20180601
  Transmission Date: 20180711
  Serious: Yes (Death, Hospitalization, Other)
  Sender: FDA-Public Use
  Company Number: US-009507513-1201USA00766

PATIENT
  Sex: Female
  Weight: 51.7 kg

DRUGS (7)
  1. BONIVA [Suspect]
     Active Substance: IBANDRONATE SODIUM
     Indication: OSTEOPENIA
     Dosage: 150 MG, UNK
     Route: 048
     Dates: end: 200808
  2. BONIVA [Suspect]
     Active Substance: IBANDRONATE SODIUM
     Indication: OSTEOPOROSIS
  3. FOSAMAX [Suspect]
     Active Substance: ALENDRONATE SODIUM
     Indication: OSTEOPENIA
     Dosage: UNK
     Route: 048
     Dates: start: 1998
  4. ALENDRONATE SODIUM. [Suspect]
     Active Substance: ALENDRONATE SODIUM
     Indication: OSTEOPOROSIS
  5. OMEPRAZOLE. [Concomitant]
     Active Substance: OMEPRAZOLE
     Indication: PRODUCT USED FOR UNKNOWN INDICATION
     Dosage: UNK
     Route: 065
     Dates: start: 200609
  6. ALENDRONATE SODIUM. [Suspect]
     Active Substance: ALENDRONATE SODIUM
     Indication: OSTEOPENIA
     Dosage: 70 MG, QW
     Route: 065
     Dates: start: 20080907, end: 2009
  7. FOSAMAX [Suspect]
     Active Substance: ALENDRONATE SODIUM
     Indication: OSTEOPOROSIS
     Dosage: UNK
     Route: 048
     Dates: start: 200809, end: 2009

REACTIONS (31)
  - Abscess drainage [Unknown]
  - Inflammation [Unknown]
  - Thoracotomy [Unknown]
  - Pneumothorax [Unknown]
  - Empyema [Unknown]
  - Osteoarthritis [Unknown]
  - Appendicectomy [Unknown]
  - Hypophosphataemia [Unknown]
  - Pain in extremity [Unknown]
  - Aortic valve stenosis [Unknown]
  - Gait disturbance [Not Recovered/Not Resolved]
  - Iron deficiency [Unknown]
  - Fall [Unknown]
  - Femur fracture [Recovered/Resolved]
  - Hyperlipidaemia [Unknown]
  - Onychomycosis [Unknown]
  - Hand deformity [Unknown]
  - Peripheral venous disease [Unknown]
  - Surgery [Unknown]
  - Lung operation [Unknown]
  - Cardiac murmur [Unknown]
  - Anaemia [Unknown]
  - Psoriasis [Unknown]
  - Limb operation [Unknown]
  - Spinal compression fracture [Unknown]
  - Intramedullary rod insertion [Unknown]
  - Pneumonia [Unknown]
  - Chest X-ray abnormal [Unknown]
  - Hypotension [Recovered/Resolved]
  - Hysterectomy [Unknown]
  - Adverse event [Fatal]

NARRATIVE: CASE EVENT DATE: 20081013
